FAERS Safety Report 5232118-8 (Version None)
Quarter: 2007Q1

REPORT INFORMATION
  Report Type: 
  Country: None (occurrence: None)
  Receive Date: 20061201
  Receipt Date: 20060829
  Transmission Date: 20070707
  Serious: No
  Sender: FDA-Public Use
  Company Number: US200608006691

PATIENT
  Age: 53 Year
  Sex: Female

DRUGS (2)
  1. CYMBALTA [Suspect]
     Indication: MENOPAUSAL SYMPTOMS
     Dosage: 30 MG, DAILY (1/D), ORAL
     Route: 048
     Dates: start: 20060821
  2. FEMHRT [Concomitant]

REACTIONS (5)
  - APATHY [None]
  - DRUG INEFFECTIVE [None]
  - FLAT AFFECT [None]
  - INSOMNIA [None]
  - THINKING ABNORMAL [None]
